FAERS Safety Report 7768235-8 (Version None)
Quarter: 2011Q3

REPORT INFORMATION
  Report Type: 
  Country: None (occurrence: None)
  Receive Date: 20110922
  Receipt Date: 20110912
  Transmission Date: 20111222
  Serious: Yes (Other)
  Sender: FDA-Public Use
  Company Number: JP-GENENTECH-324434

PATIENT

DRUGS (1)
  1. RITUXIMAB [Suspect]
     Indication: B-CELL LYMPHOMA
     Dosage: 375 MG/M2, 1/WEEK
     Route: 065

REACTIONS (16)
  - RECTOSIGMOID CANCER [None]
  - FEBRILE NEUTROPENIA [None]
  - THROMBOCYTOPENIA [None]
  - BLOOD URINE PRESENT [None]
  - ASPARTATE AMINOTRANSFERASE INCREASED [None]
  - PNEUMONIA [None]
  - DYSPNOEA [None]
  - HYPOKALAEMIA [None]
  - BRONCHOSPASM [None]
  - ALANINE AMINOTRANSFERASE INCREASED [None]
  - HYPERBILIRUBINAEMIA [None]
  - HEPATITIS B [None]
  - LEUKOPENIA [None]
  - NEUTROPENIA [None]
  - PANCREATITIS ACUTE [None]
  - GASTROENTERITIS VIRAL [None]
